FAERS Safety Report 20485508 (Version 3)
Quarter: 2022Q1

REPORT INFORMATION
  Report Type: Report from Study
  Country: KR (occurrence: None)
  Receive Date: 20220217
  Receipt Date: 20220301
  Transmission Date: 20220424
  Serious: Yes (Hospitalization)
  Sender: FDA-Public Use
  Company Number: KR-Eisai Medical Research-EC-2022-108589

PATIENT
  Age: 60 Year
  Sex: Female
  Weight: 50.6 kg

DRUGS (3)
  1. LENVIMA [Interacting]
     Active Substance: LENVATINIB
     Indication: Endometrial cancer
     Route: 048
     Dates: start: 20211222, end: 20220127
  2. LENVIMA [Interacting]
     Active Substance: LENVATINIB
     Route: 048
     Dates: start: 20220211
  3. PEMBROLIZUMAB [Interacting]
     Active Substance: PEMBROLIZUMAB
     Indication: Endometrial cancer
     Route: 042
     Dates: start: 20211222

REACTIONS (3)
  - Mouth ulceration [Recovered/Resolved]
  - Drug interaction [Recovered/Resolved]
  - Diarrhoea [Recovered/Resolved]

NARRATIVE: CASE EVENT DATE: 20220111
